FAERS Safety Report 7678085-9 (Version None)
Quarter: 2011Q3

REPORT INFORMATION
  Report Type: 
  Country: None (occurrence: None)
  Receive Date: 20110811
  Receipt Date: 20110801
  Transmission Date: 20111222
  Serious: Yes (Hospitalization)
  Sender: FDA-Public Use
  Company Number: TW-BRISTOL-MYERS SQUIBB COMPANY-15938236

PATIENT
  Age: 78 Year
  Sex: Female

DRUGS (1)
  1. WARFARIN SODIUM [Suspect]
     Indication: DEEP VEIN THROMBOSIS

REACTIONS (3)
  - OVERDOSE [None]
  - PERICARDIAL HAEMORRHAGE [None]
  - VASCULAR PSEUDOANEURYSM [None]
